FAERS Safety Report 6729295-6 (Version None)
Quarter: 2010Q2

REPORT INFORMATION
  Report Type: 
  Country: None (occurrence: None)
  Receive Date: 20100517
  Receipt Date: 20100505
  Transmission Date: 20101027
  Serious: No
  Sender: FDA-Public Use
  Company Number: US-ABBOTT-10P-163-0642447-00

PATIENT
  Sex: Male

DRUGS (4)
  1. SIMCOR [Suspect]
     Indication: HYPERLIPIDAEMIA
     Dosage: 750/20MG AT BED TIME
     Dates: start: 20080501
  2. PLAVIX [Concomitant]
     Indication: DRUG USE FOR UNKNOWN INDICATION
  3. METOPROLOL TARTRATE [Concomitant]
     Indication: DRUG USE FOR UNKNOWN INDICATION
     Dosage: 12.5MG DAILY
  4. ASPIRIN [Concomitant]
     Indication: DRUG USE FOR UNKNOWN INDICATION
     Dosage: 81MG DAILY

REACTIONS (3)
  - FLUSHING [None]
  - RASH [None]
  - SKIN BURNING SENSATION [None]
